FAERS Safety Report 6883262-0 (Version None)
Quarter: 2010Q3

REPORT INFORMATION
  Report Type: 
  Country: None (occurrence: None)
  Receive Date: 20100727
  Receipt Date: 20070712
  Transmission Date: 20110219
  Serious: Yes (Hospitalization)
  Sender: FDA-Public Use
  Company Number: US-PFIZER INC-2006111453

PATIENT
  Sex: Female
  Weight: 90.7 kg

DRUGS (5)
  1. CELEBREX [Suspect]
     Indication: PAIN IN EXTREMITY
     Dates: start: 20030707, end: 20030721
  2. VIOXX [Suspect]
     Indication: PAIN IN EXTREMITY
     Dates: start: 20030721, end: 20030822
  3. NOVOLIN [Concomitant]
  4. MAXZIDE [Concomitant]
  5. GLUCOPHAGE [Concomitant]

REACTIONS (1)
  - CEREBROVASCULAR ACCIDENT [None]
